FAERS Safety Report 8613048-8 (Version None)
Quarter: 2012Q3

REPORT INFORMATION
  Report Type: 
  Country: None (occurrence: None)
  Receive Date: 20120822
  Receipt Date: 20120817
  Transmission Date: 20120928
  Serious: No
  Sender: FDA-Public Use
  Company Number: US-PFIZER INC-2012192413

PATIENT
  Age: 61 Year
  Sex: Female
  Weight: 74.83 kg

DRUGS (6)
  1. LYRICA [Suspect]
     Indication: FIBROMYALGIA
     Dosage: 75 MG, 2X/DAY
     Route: 048
     Dates: start: 20120701, end: 20120814
  2. CHANTIX [Concomitant]
     Dosage: UNK
     Dates: start: 20120801
  3. DEPAKOTE [Concomitant]
     Indication: CONVULSION
     Dosage: 1000 MG, 1X/DAY
  4. LYRICA [Suspect]
     Indication: COCCYDYNIA
  5. LEVOTHYROXINE [Concomitant]
     Indication: HYPOTHYROIDISM
     Dosage: UNK
  6. SEROQUEL [Concomitant]
     Indication: BIPOLAR DISORDER
     Dosage: 300 MG, UNK

REACTIONS (3)
  - PAIN [None]
  - DEPRESSION [None]
  - FATIGUE [None]
